FAERS Safety Report 17841856 (Version 2)
Quarter: 2020Q2

REPORT INFORMATION
  Report Type: Spontaneous
  Country: CA (occurrence: CA)
  Receive Date: 20200529
  Receipt Date: 20200604
  Transmission Date: 20200714
  Serious: Yes (Other)
  Sender: FDA-Public Use
  Company Number: CA-PFIZER INC-2020201052

PATIENT
  Age: 56 Year
  Sex: Female

DRUGS (3)
  1. PREDNISONE. [Concomitant]
     Active Substance: PREDNISONE
     Dosage: 10 MG, DAILY
     Route: 065
  2. METHOTREXATE SODIUM. [Suspect]
     Active Substance: METHOTREXATE SODIUM
     Indication: RHEUMATOID ARTHRITIS
     Dosage: UNK
     Route: 065
     Dates: start: 2014
  3. METHOTREXATE SODIUM. [Suspect]
     Active Substance: METHOTREXATE SODIUM
     Indication: PSORIATIC ARTHROPATHY

REACTIONS (10)
  - Drug ineffective [Unknown]
  - Nausea [Unknown]
  - Herpes zoster [Unknown]
  - Constipation [Unknown]
  - Rhinorrhoea [Unknown]
  - Weight decreased [Unknown]
  - Diarrhoea [Unknown]
  - Cough [Unknown]
  - Acne [Unknown]
  - Burning sensation [Unknown]
